FAERS Safety Report 22194385 (Version 1)
Quarter: 2023Q2

REPORT INFORMATION
  Report Type: Spontaneous
  Country: GB (occurrence: GB)
  Receive Date: 20230411
  Receipt Date: 20230411
  Transmission Date: 20230722
  Serious: Yes (Disabling, Other)
  Sender: FDA-Public Use
  Company Number: GB-MHRA-MED-202303211533270050-NVPJG

PATIENT
  Sex: Male

DRUGS (2)
  1. QUETIAPINE [Suspect]
     Active Substance: QUETIAPINE
     Indication: Tinnitus
     Dosage: 1 MILLIGRAM, EVERY HOUR AT NIGHT
     Route: 065
     Dates: start: 20180810
  2. CLONAZEPAM [Suspect]
     Active Substance: CLONAZEPAM
     Indication: Tinnitus
     Dosage: 1 MILLIGRAM, ONCE A DAY (AT NIGHT)
     Route: 065
     Dates: start: 20180810

REACTIONS (6)
  - Cataract [Unknown]
  - Cognitive disorder [Not Recovered/Not Resolved]
  - Constipation [Unknown]
  - Insomnia [Unknown]
  - Skin disorder [Unknown]
  - Memory impairment [Unknown]

NARRATIVE: CASE EVENT DATE: 20190507
